FAERS Safety Report 8317928 (Version 2)
Quarter: 2013Q2

REPORT INFORMATION
  Report Type: Spontaneous
  Country: GB (occurrence: GB)
  Receive Date: 20120102
  Receipt Date: 20130515
  Transmission Date: 20140414
  Serious: Yes (Other)
  Sender: FDA-Public Use
  Company Number: GB-ROCHE-1026139

PATIENT
  Age: 20 Year
  Sex: Female
  Weight: 67 kg

DRUGS (4)
  1. NAPROXEN [Suspect]
     Indication: PAIN
     Route: 048
     Dates: start: 20111027, end: 20111205
  2. PREGABALIN [Interacting]
     Indication: PAIN
     Route: 065
     Dates: start: 20111025, end: 20111130
  3. CO-CODAMOL [Interacting]
     Indication: PAIN
     Route: 065
  4. CILEST [Interacting]
     Indication: CONTRACEPTION
     Route: 065

REACTIONS (2)
  - Drug interaction [Unknown]
  - Pregnancy [Unknown]
